FAERS Safety Report 23508148 (Version 1)
Quarter: 2024Q1

REPORT INFORMATION
  Report Type: Spontaneous
  Country: US (occurrence: US)
  Receive Date: 20240209
  Receipt Date: 20240209
  Transmission Date: 20240409
  Serious: Yes (Other)
  Sender: FDA-Public Use
  Company Number: US-SA-SAC20240208000234

PATIENT
  Age: 66 Year
  Sex: Female

DRUGS (1)
  1. DUPIXENT [Suspect]
     Active Substance: DUPILUMAB
     Indication: Dermatitis atopic
     Dosage: 1 DF, QOW
     Route: 058

REACTIONS (13)
  - Crohn^s disease [Unknown]
  - Malaise [Unknown]
  - Night sweats [Unknown]
  - Pain [Unknown]
  - Gastrointestinal pain [Unknown]
  - Condition aggravated [Unknown]
  - Diarrhoea [Unknown]
  - Rhinorrhoea [Unknown]
  - Sneezing [Unknown]
  - Arthritis [Unknown]
  - Inflammation [Unknown]
  - Pain in extremity [Unknown]
  - Rash [Unknown]

NARRATIVE: CASE EVENT DATE: 20240101
